FAERS Safety Report 6837742-4 (Version None)
Quarter: 2010Q3

REPORT INFORMATION
  Report Type: 
  Country: None (occurrence: None)
  Receive Date: 20100713
  Receipt Date: 20070520
  Transmission Date: 20110219
  Serious: No
  Sender: FDA-Public Use
  Company Number: US-PFIZER INC-2007040824

PATIENT
  Age: 76 Year
  Sex: Female

DRUGS (5)
  1. CHANTIX [Suspect]
     Indication: SMOKING CESSATION THERAPY
     Dates: start: 20070517
  2. FOSAMAX [Concomitant]
  3. NORVASC [Concomitant]
  4. ZOCOR [Concomitant]
  5. ALL OTHER THERAPEUTIC PRODUCTS [Concomitant]

REACTIONS (2)
  - ABNORMAL DREAMS [None]
  - CONSTIPATION [None]
